FAERS Safety Report 8134538-0 (Version None)
Quarter: 2012Q1

REPORT INFORMATION
  Report Type: 
  Country: None (occurrence: None)
  Receive Date: 20120214
  Receipt Date: 20120210
  Transmission Date: 20120608
  Serious: Yes (Other)
  Sender: FDA-Public Use
  Company Number: US-PFIZER INC-2012034214

PATIENT
  Sex: Male
  Weight: 113.38 kg

DRUGS (1)
  1. EFFEXOR XR [Suspect]
     Indication: DEPRESSION
     Dosage: UNK
     Route: 048

REACTIONS (7)
  - BLOOD CHOLESTEROL INCREASED [None]
  - IMPAIRED DRIVING ABILITY [None]
  - SUICIDAL IDEATION [None]
  - HYPERTENSION [None]
  - DIZZINESS [None]
  - WITHDRAWAL SYNDROME [None]
  - HOMICIDAL IDEATION [None]
